FAERS Safety Report 5268165-X (Version None)
Quarter: 2007Q1

REPORT INFORMATION
  Report Type: 
  Country: None (occurrence: None)
  Receive Date: 20070316
  Receipt Date: 20070316
  Transmission Date: 20070707
  Serious: Yes (Other)
  Sender: FDA-Public Use
  Company Number: None

PATIENT
  Age: 55 Year
  Sex: Female
  Weight: 67.1324 kg

DRUGS (1)
  1. LEVAQUIN [Suspect]
     Indication: OTITIS MEDIA
     Dosage: 1  500 MG  TABLET   DAILY   PO
     Route: 048
     Dates: start: 20070220, end: 20070301

REACTIONS (1)
  - ROTATOR CUFF SYNDROME [None]
